FAERS Safety Report 6537095-5 (Version None)
Quarter: 2010Q1

REPORT INFORMATION
  Report Type: 
  Country: None (occurrence: None)
  Receive Date: 20100110
  Receipt Date: 20091231
  Transmission Date: 20100710
  Serious: Yes (Death)
  Sender: FDA-Public Use
  Company Number: DSA_42277_2009

PATIENT
  Sex: Female

DRUGS (1)
  1. XENAZINE [Suspect]
     Indication: HUNTINGTON'S CHOREA
     Dosage: (12.5 MG QD)
     Dates: start: 20091203

REACTIONS (3)
  - DYSPNOEA [None]
  - FAILURE TO THRIVE [None]
  - RESPIRATORY RATE INCREASED [None]
